FAERS Safety Report 9487779 (Version 2)
Quarter: 2013Q3

REPORT INFORMATION
  Report Type: Spontaneous
  Country: US (occurrence: US)
  Receive Date: 20130725
  Receipt Date: 20130725
  Transmission Date: 20140515
  Serious: Yes (Hospitalization)
  Sender: FDA-Public Use
  Company Number: US-GLAXOSMITHKLINE-A0932430A

PATIENT
  Age: 74 Year
  Sex: Female

DRUGS (6)
  1. AVANDIA [Suspect]
     Indication: DIABETES MELLITUS
     Dosage: 4MG PER DAY
     Route: 048
     Dates: start: 20000203, end: 20070720
  2. GLYBURIDE [Concomitant]
  3. INDERAL [Concomitant]
  4. VASOTEC [Concomitant]
  5. ZOCOR [Concomitant]
  6. ZANTAC [Concomitant]

REACTIONS (1)
  - Cardiac failure congestive [Recovering/Resolving]
